FAERS Safety Report 6459591-1 (Version None)
Quarter: 2009Q4

REPORT INFORMATION
  Report Type: 
  Country: None (occurrence: None)
  Receive Date: 20091127
  Receipt Date: 20090909
  Transmission Date: 20100525
  Serious: No
  Sender: FDA-Public Use
  Company Number: US-AMGEN-KDL363674

PATIENT
  Sex: Male
  Weight: 112.6 kg

DRUGS (7)
  1. ENBREL [Suspect]
     Indication: PSORIASIS
     Dates: start: 20090629
  2. ENBREL [Suspect]
     Indication: PSORIATIC ARTHROPATHY
  3. METHOTREXATE [Concomitant]
     Dates: start: 20090629, end: 20090803
  4. PREDNISONE [Concomitant]
     Dates: start: 20090306
  5. SIMVASTATIN [Concomitant]
     Dates: start: 20090719
  6. LISINOPRIL [Concomitant]
     Dates: start: 20090719
  7. FOLIC ACID [Concomitant]
     Dates: start: 20090629

REACTIONS (1)
  - HERPES ZOSTER [None]
